FAERS Safety Report 6368701-6 (Version None)
Quarter: 2009Q3

REPORT INFORMATION
  Report Type: 
  Country: None (occurrence: None)
  Receive Date: 20090917
  Receipt Date: 20090917
  Transmission Date: 20100115
  Serious: No
  Sender: FDA-Public Use
  Company Number: None

PATIENT
  Sex: Male
  Weight: 115.2136 kg

DRUGS (2)
  1. ZICAM COLD REMEDY GEL SWABS ZINCUM GLUCONICUM 2X ZICAM LLC, MATRIXX IN [Suspect]
     Indication: NASOPHARYNGITIS
     Dosage: 1 TUBE/SWAB EVERY 4 HOURS NASAL
     Route: 045
     Dates: start: 20050101, end: 20090101
  2. ZICAM COLD REMEDY GEL SWABS ZINCUM GLUCONICUM 2X ZICAM LLC, MATRIXX IN [Suspect]

REACTIONS (3)
  - DEVICE FAILURE [None]
  - HYPOSMIA [None]
  - PRODUCT QUALITY ISSUE [None]
